FAERS Safety Report 7113651-0 (Version None)
Quarter: 2010Q4

REPORT INFORMATION
  Report Type: 
  Country: None (occurrence: None)
  Receive Date: 20101119
  Receipt Date: 20101108
  Transmission Date: 20110411
  Serious: Yes (Hospitalization, Other)
  Sender: FDA-Public Use
  Company Number: US-WATSON-2010-14614

PATIENT
  Sex: Female
  Weight: 85.714 kg

DRUGS (3)
  1. FENTANYL-25 [Suspect]
     Indication: PAIN
     Dosage: 1 PATCH Q 72 HRS
     Route: 062
     Dates: start: 20101103
  2. FENTANYL-50 [Suspect]
     Indication: PAIN
     Dosage: 1 PATCH Q 72 HRS
     Route: 062
     Dates: start: 20101008, end: 20101029
  3. DILANTIN [Suspect]
     Indication: PROPHYLAXIS
     Dosage: 1 TABLET DAILY
     Route: 048
     Dates: start: 20000101

REACTIONS (4)
  - CONFUSIONAL STATE [None]
  - CONVULSION [None]
  - IRRITABILITY [None]
  - TREMOR [None]
